FAERS Safety Report 9739912 (Version 3)
Quarter: 2014Q1

REPORT INFORMATION
  Report Type: Spontaneous
  Country: US (occurrence: US)
  Receive Date: 20131209
  Receipt Date: 20140310
  Transmission Date: 20141002
  Serious: No
  Sender: FDA-Public Use
  Company Number: US-ASTELLAS-2013US012031

PATIENT
  Age: 76 Year
  Sex: Male

DRUGS (3)
  1. XTANDI [Suspect]
     Indication: PROSTATE CANCER
     Dosage: 160 MG, UID/QD
     Route: 048
     Dates: start: 20131002
  2. XTANDI [Suspect]
     Dosage: 160 MG, UID/QD
     Route: 048
     Dates: start: 201310
  3. XTANDI [Suspect]
     Dosage: 160 MG, UID/QD
     Route: 048

REACTIONS (7)
  - Lacrimation increased [Unknown]
  - Rhinorrhoea [Unknown]
  - Somnolence [Unknown]
  - Back pain [Unknown]
  - Bone pain [Unknown]
  - Furuncle [Unknown]
  - Fatigue [Unknown]
